FAERS Safety Report 6680297-8 (Version None)
Quarter: 2010Q2

REPORT INFORMATION
  Report Type: 
  Country: None (occurrence: None)
  Receive Date: 20100408
  Receipt Date: 20100325
  Transmission Date: 20101027
  Serious: Yes (Life-Threatening, Hospitalization)
  Sender: FDA-Public Use
  Company Number: 549777

PATIENT
  Age: 36 Year
  Sex: Female
  Weight: 63 kg

DRUGS (9)
  1. MIDAZOLAM HCL [Suspect]
     Indication: POSTOPERATIVE ANALGESIA
     Dates: start: 20100306
  2. PARECOXIB SODIUM [Suspect]
     Indication: POSTOPERATIVE ANALGESIA
     Dosage: 40 MG, INTRAVENOUS
     Route: 042
     Dates: start: 20100305, end: 20100306
  3. (AMITRIPTYLINE) [Concomitant]
  4. CODEINE SULFATE [Concomitant]
  5. (MEBEVERINE HYDROCHLORIDE) [Concomitant]
  6. DESOGESTREL AND ETHINYL ESTRADIOL [Concomitant]
  7. (PIZOTIFEN) [Concomitant]
  8. PROPRANOLOL [Concomitant]
  9. SERTRALINE HCL [Concomitant]

REACTIONS (6)
  - ACUTE CORONARY SYNDROME [None]
  - ARTERIOSPASM CORONARY [None]
  - ELECTROCARDIOGRAM ST SEGMENT DEPRESSION [None]
  - ELECTROCARDIOGRAM T WAVE INVERSION [None]
  - HEADACHE [None]
  - RESPIRATORY ARREST [None]
